FAERS Safety Report 5877983-6 (Version None)
Quarter: 2008Q3

REPORT INFORMATION
  Report Type: 
  Country: None (occurrence: None)
  Receive Date: 20080911
  Receipt Date: 20080903
  Transmission Date: 20090109
  Serious: Yes (Hospitalization)
  Sender: FDA-Public Use
  Company Number: US-ABBOTT-08P-163-0474111-00

PATIENT
  Sex: Female
  Weight: 113.5 kg

DRUGS (17)
  1. HUMIRA [Suspect]
     Indication: RHEUMATOID ARTHRITIS
     Route: 050
     Dates: start: 20050101, end: 20070901
  2. HUMIRA [Suspect]
     Route: 050
     Dates: start: 20071001
  3. METHOTREXATE [Concomitant]
     Indication: RHEUMATOID ARTHRITIS
     Route: 048
     Dates: start: 20010101, end: 20070101
  4. METHOTREXATE [Concomitant]
     Route: 050
     Dates: start: 20070101, end: 20080701
  5. HYDROCODONE BITARTRATE [Concomitant]
     Indication: FIBROMYALGIA
     Dosage: 3-4 PER DAY
     Route: 048
     Dates: start: 20080801
  6. MELOXICAM [Concomitant]
     Indication: RHEUMATOID ARTHRITIS
     Route: 048
     Dates: start: 20050101
  7. GABAPENTIN [Concomitant]
     Indication: NEURALGIA
     Route: 048
     Dates: start: 20010101
  8. ZOLPIDEM TARTRATE [Concomitant]
     Indication: FIBROMYALGIA
     Route: 048
     Dates: start: 20070101
  9. CETIRIZINE HYDROCHLORIDE [Concomitant]
     Indication: CHRONIC SINUSITIS
     Route: 048
     Dates: start: 19980101
  10. LEVOTHYROXINE SODIUM [Concomitant]
     Indication: HYPOTHYROIDISM
     Route: 048
     Dates: start: 20060101
  11. KLONOPIN [Concomitant]
     Indication: ANXIETY
     Route: 048
     Dates: start: 19920101
  12. VENLAFAXINE HCL [Concomitant]
     Indication: DEPRESSION
     Route: 048
     Dates: start: 19960101
  13. TRAZODONE HCL [Concomitant]
     Indication: INSOMNIA
     Route: 048
     Dates: start: 19960101
  14. OMEPRAZOLE MAGNESIUM [Concomitant]
     Indication: GASTRITIS
     Route: 048
     Dates: start: 20020101
  15. OXYMETAZOLINE HYDROCHLORIDE [Concomitant]
     Indication: CHRONIC SINUSITIS
     Route: 048
     Dates: start: 20020101
  16. IPRATROPIUM BROMIDE [Concomitant]
     Indication: CHRONIC SINUSITIS
     Route: 045
     Dates: start: 19930101
  17. FLUTICASONE PROPIONATE [Concomitant]
     Indication: CHRONIC SINUSITIS
     Route: 045
     Dates: start: 19930101

REACTIONS (5)
  - EPSTEIN-BARR VIRUS INFECTION [None]
  - INFLUENZA LIKE ILLNESS [None]
  - NEURALGIA [None]
  - UTERINE PROLAPSE [None]
  - VAGINAL HAEMORRHAGE [None]
